FAERS Safety Report 8683707 (Version 2)
Quarter: 2012Q4

REPORT INFORMATION
  Report Type: 
  Country: AU (occurrence: AU)
  Receive Date: 20120726
  Receipt Date: 20121009
  Transmission Date: 20130627
  Serious: Yes (Death, Hospitalization)
  Sender: FDA-Public Use
  Company Number: PHHY2012AU063723

PATIENT
  Age: 81 None
  Sex: Male

DRUGS (1)
  1. ACLASTA [Suspect]
     Dosage: 5 mg,
     Route: 042
     Dates: start: 20110708

REACTIONS (2)
  - Death [Fatal]
  - Lower respiratory tract infection [Unknown]
